FAERS Safety Report 18304031 (Version 2)
Quarter: 2021Q1

REPORT INFORMATION
  Report Type: Spontaneous
  Country: DE (occurrence: DE)
  Receive Date: 20200923
  Receipt Date: 20210325
  Transmission Date: 20210419
  Serious: Yes (Other)
  Sender: FDA-Public Use
  Company Number: NVSC2020DE256950

PATIENT
  Age: 18 Year
  Sex: Male

DRUGS (12)
  1. PIPERACILLIN /TAZOBACTAM [Interacting]
     Active Substance: PIPERACILLIN SODIUM\TAZOBACTAM SODIUM
     Indication: PYREXIA
     Dosage: 4.5 G (IN PARALLEL TO THE MTX COURSE)
     Route: 041
  2. METHOTREXAT MEDAC [Interacting]
     Active Substance: METHOTREXATE
     Dosage: 12000 MG/M2, CYCLIC (THIRD HIGH DOSE?MTX COURSE)
     Route: 041
  3. METHOTREXAT MEDAC [Interacting]
     Active Substance: METHOTREXATE
     Dosage: 12000 MG/M2, CYCLIC (TWO FURTHER CYCLES OF HIGH DOSE?MTX)
     Route: 041
  4. METHOTREXAT MEDAC [Interacting]
     Active Substance: METHOTREXATE
     Dosage: 12000 MG/M2, CYCLIC (TWO FURTHER CYCLES OF HIGH DOSE?MTX)
     Route: 041
  5. METHOTREXAT MEDAC [Interacting]
     Active Substance: METHOTREXATE
     Dosage: 12000 MG/M2, CYCLIC (FOURTH MTX COURSE OF THE SECOND NEOADJUVANT CYCLE)
     Route: 041
  6. METHOTREXAT MEDAC [Interacting]
     Active Substance: METHOTREXATE
     Dosage: 12000 MG/M2, CYCLIC (SECOND ADJUVANT MTX COURSE)
     Route: 041
  7. PIPERACILLIN /TAZOBACTAM [Interacting]
     Active Substance: PIPERACILLIN SODIUM\TAZOBACTAM SODIUM
     Dosage: 4.5 G (IN PARALLEL TO THE MTX COURSE)
     Route: 041
  8. PIPERACILLIN /TAZOBACTAM [Interacting]
     Active Substance: PIPERACILLIN SODIUM\TAZOBACTAM SODIUM
     Dosage: 4.5 G (28 HOURS AFTER THE START OF HIGH DOSE?MTX ADMINISTRATION)
     Route: 041
  9. METHOTREXAT MEDAC [Interacting]
     Active Substance: METHOTREXATE
     Indication: OSTEOSARCOMA
     Dosage: 12000 MG/M2, CYCLIC (FIRST MTX COURSE IN WEEK 4)
     Route: 041
  10. PIPERACILLIN /TAZOBACTAM [Suspect]
     Active Substance: PIPERACILLIN SODIUM\TAZOBACTAM SODIUM
     Indication: URINARY TRACT INFECTION
     Dosage: 4.5 G (WAS INFUSED 30 MINUTES PRIOR TO THE HIGH DOSE?MTX INFUSION)
     Route: 041
  11. PIPERACILLIN /TAZOBACTAM [Interacting]
     Active Substance: PIPERACILLIN SODIUM\TAZOBACTAM SODIUM
     Dosage: 4.5 G (IN PARALLEL TO THE MTX COURSE)
     Route: 041
  12. METHOTREXAT MEDAC [Interacting]
     Active Substance: METHOTREXATE
     Dosage: 12000 MG/M2, CYCLIC (FIRST ADJUVANT MTX COURSE)
     Route: 041

REACTIONS (4)
  - Acute kidney injury [Recovered/Resolved]
  - Drug interaction [Unknown]
  - Myelopathy [Recovered/Resolved]
  - Neurotoxicity [Recovered/Resolved]
